FAERS Safety Report 14394439 (Version 1)
Quarter: 2018Q1

REPORT INFORMATION
  Report Type: Spontaneous
  Country: US (occurrence: US)
  Receive Date: 20180116
  Receipt Date: 20180116
  Transmission Date: 20180509
  Serious: No
  Sender: FDA-Public Use
  Company Number: US-REGENERON PHARMACEUTICALS, INC.-2017-25482

PATIENT

DRUGS (1)
  1. EYLEA [Suspect]
     Active Substance: AFLIBERCEPT
     Indication: NEOVASCULAR AGE-RELATED MACULAR DEGENERATION
     Dosage: 2 MG, Q 2 MON, OS
     Route: 031
     Dates: start: 20160623

REACTIONS (2)
  - Sneezing [Recovered/Resolved]
  - Product contamination physical [Recovered/Resolved]

NARRATIVE: CASE EVENT DATE: 20171027
